FAERS Safety Report 6056944-0 (Version None)
Quarter: 2009Q1

REPORT INFORMATION
  Report Type: 
  Country: None (occurrence: None)
  Receive Date: 20090126
  Receipt Date: 20090126
  Transmission Date: 20090719
  Serious: Yes (Hospitalization)
  Sender: FDA-Public Use
  Company Number: None

PATIENT
  Age: 59 Year
  Sex: Female

DRUGS (3)
  1. FOSTEUM CAPSULES [Suspect]
     Indication: OSTEOPENIA
     Dosage: DAILY, PO
     Route: 048
  2. FOSTEUM CAPSULES [Suspect]
     Indication: OSTEOPENIA
     Dosage: DAILY, PO
     Route: 048
  3. UNKNOWN HYPOTHYROID MEDICATION [Concomitant]

REACTIONS (3)
  - ASTHENIA [None]
  - DIZZINESS [None]
  - MUSCULOSKELETAL PAIN [None]
